FAERS Safety Report 11288198 (Version 1)
Quarter: 2015Q3

REPORT INFORMATION
  Report Type: Spontaneous
  Country: GB (occurrence: GB)
  Receive Date: 20150721
  Receipt Date: 20150721
  Transmission Date: 20151125
  Serious: Yes (Life-Threatening)
  Sender: FDA-Public Use
  Company Number: GB-TEVA-578418ACC

PATIENT
  Age: 1 Year
  Sex: Female
  Weight: 12 kg

DRUGS (3)
  1. OMNITROPE [Concomitant]
     Active Substance: SOMATROPIN
  2. LEVOTHYROXINE. [Concomitant]
     Active Substance: LEVOTHYROXINE
  3. HYDROCORTISONE. [Suspect]
     Active Substance: HYDROCORTISONE
     Indication: HYPOPITUITARISM
     Dosage: 10 MG TABLETS DISSOLVED TO ADMINISTER SMALL DOSES.
     Route: 048
     Dates: start: 20140831, end: 20150604

REACTIONS (4)
  - Product coating issue [Recovered/Resolved]
  - Accidental underdose [Recovered/Resolved]
  - Adrenocortical insufficiency acute [Recovered/Resolved]
  - Hypoglycaemic seizure [Recovered/Resolved]

NARRATIVE: CASE EVENT DATE: 20150530
